FAERS Safety Report 9698943 (Version 1)
Quarter: 2013Q4

REPORT INFORMATION
  Report Type: Spontaneous
  Country: US (occurrence: None)
  Receive Date: 20131118
  Receipt Date: 20131118
  Transmission Date: 20140711
  Serious: Yes (Death, Other)
  Sender: FDA-Public Use
  Company Number: 2013NUEUSA00254

PATIENT
  Sex: Female

DRUGS (1)
  1. NUEDEXTA [Suspect]
     Indication: AFFECT LABILITY
     Dates: start: 2013, end: 201310

REACTIONS (2)
  - Respiratory failure [None]
  - Dyspnoea [None]
